FAERS Safety Report 4761168-0 (Version None)
Quarter: 2005Q3

REPORT INFORMATION
  Report Type: 
  Country: None (occurrence: None)
  Receive Date: 20050906
  Receipt Date: 20050824
  Transmission Date: 20060218
  Serious: Yes (Other)
  Sender: FDA-Public Use
  Company Number: US-BOEHRINGER INGELHEIM PHARMACEUTICALS, INC.-2005-BP-14787BP

PATIENT
  Sex: Male
  Weight: 69.4 kg

DRUGS (19)
  1. TIPRANAVIR / RITONAVIR CAPSULES [Suspect]
     Indication: HIV INFECTION
     Dosage: TPV/R 1000/400 MG
     Route: 048
     Dates: start: 20031125
  2. VIREAD [Concomitant]
     Indication: HIV INFECTION
     Route: 048
     Dates: start: 20030805
  3. VIDEX EC [Concomitant]
     Indication: HIV INFECTION
     Route: 048
     Dates: start: 20030806
  4. EPIVIR [Concomitant]
     Indication: HIV INFECTION
     Route: 048
     Dates: start: 20030501
  5. BACTRIM DS [Concomitant]
     Indication: INFECTION PROPHYLAXIS
     Route: 048
     Dates: start: 20030501
  6. ZITHROMYCIN [Concomitant]
     Indication: INFECTION PROPHYLAXIS
     Dosage: 1200 MG EVERY WEEK
     Route: 048
     Dates: start: 20030501
  7. PRAVACHOL [Concomitant]
     Indication: HYPERLIPIDAEMIA
     Route: 048
     Dates: start: 20030501
  8. SYNTHROID [Concomitant]
     Indication: HYPOTHYROIDISM
     Route: 048
     Dates: start: 20050412
  9. AVANDIA [Concomitant]
     Indication: DIABETES MELLITUS
     Route: 048
     Dates: start: 20030501
  10. PRANDIN [Concomitant]
     Indication: DIABETES MELLITUS
     Route: 048
     Dates: start: 20030501
  11. BUSPAR [Concomitant]
     Indication: DEPRESSION
     Route: 048
     Dates: start: 20030501
  12. TRAZADONE [Concomitant]
     Indication: DEPRESSION
     Route: 048
     Dates: start: 20030501
  13. PAXIL [Concomitant]
     Indication: DEPRESSION
     Route: 048
     Dates: start: 20030501
  14. ELAVIL [Concomitant]
     Indication: DEPRESSION
     Route: 048
     Dates: start: 20030501
  15. PREVACID [Concomitant]
     Indication: GASTROOESOPHAGEAL REFLUX DISEASE
     Route: 048
     Dates: start: 20030501
  16. REMERON [Concomitant]
     Indication: DEPRESSION
     Route: 048
     Dates: start: 20030501
  17. NEURONTIN [Concomitant]
     Indication: NEUROPATHY PERIPHERAL
     Route: 048
     Dates: start: 20030501
  18. LOTENSIN [Concomitant]
     Indication: HYPERTENSION
     Route: 048
     Dates: start: 20030501
  19. FOSAMAX [Concomitant]
     Indication: OSTEOPOROSIS
     Dosage: 70 MG EVERY WEEK
     Route: 048
     Dates: start: 20040814

REACTIONS (1)
  - BURKITT'S LYMPHOMA [None]
